FAERS Safety Report 6577284-7 (Version None)
Quarter: 2010Q1

REPORT INFORMATION
  Report Type: 
  Country: None (occurrence: None)
  Receive Date: 20100210
  Receipt Date: 20100201
  Transmission Date: 20100710
  Serious: Yes (Life-Threatening, Other)
  Sender: FDA-Public Use
  Company Number: JP-B.I. PHARMACEUTICALS,INC./RIDGEFIELD-2009-BP-14852NB

PATIENT
  Sex: Female
  Weight: 52.8 kg

DRUGS (37)
  1. MICARDIS [Suspect]
     Indication: HYPERTENSION
     Dosage: 40 MG
     Route: 048
     Dates: start: 20091225, end: 20091226
  2. MYOCOR [Suspect]
     Indication: CARDIAC FAILURE
     Dosage: 25 MG
     Route: 042
     Dates: start: 20091225, end: 20091226
  3. YM150 [Suspect]
     Dates: start: 20091225, end: 20091226
  4. SOLU-CORTEF [Concomitant]
     Indication: STEROID THERAPY
     Route: 042
  5. CALONAL [Concomitant]
     Indication: ANTIPYRESIS
     Dosage: 600 MG
     Route: 065
  6. CALTAN [Concomitant]
     Indication: HYPERTHYROIDISM
     Route: 048
  7. MEROPEN [Concomitant]
     Indication: ANTIBIOTIC PROPHYLAXIS
     Dosage: 1 G
     Route: 042
  8. TENORMIN [Concomitant]
     Indication: HYPERTENSION
     Dosage: 50 MG
     Route: 048
  9. TAKEPRON [Concomitant]
     Indication: PROPHYLAXIS AGAINST GASTROINTESTINAL ULCER
     Dosage: 30 MG
     Route: 048
  10. POTASSIUM CHLORIDE [Concomitant]
     Indication: MINERAL SUPPLEMENTATION
     Route: 065
  11. CALCICOL [Concomitant]
     Indication: MINERAL SUPPLEMENTATION
     Dosage: 850 MG
     Route: 042
  12. VASOLAN [Concomitant]
     Indication: CARDIAC FAILURE
     Dosage: 5 MG
     Route: 042
  13. BUMINATE [Concomitant]
     Indication: BLOOD ALBUMIN
     Dosage: 250 ML
     Route: 042
  14. LUGOL CAP [Concomitant]
     Indication: INFECTION PROPHYLAXIS
     Route: 065
  15. ONEALFA [Concomitant]
     Indication: VITAMIN D
     Dosage: 0.5 MCG
     Route: 048
  16. CALCIUM LACTATE [Concomitant]
     Indication: MINERAL SUPPLEMENTATION
     Dosage: 3 G
     Route: 065
  17. CORTRIL [Concomitant]
     Indication: STEROID THERAPY
     Dosage: 4DF
     Route: 048
  18. MERCAZOLE [Concomitant]
     Indication: BASEDOW'S DISEASE
     Dosage: 10 MG
     Route: 048
     Dates: start: 20091224, end: 20091227
  19. MUSCURATE [Concomitant]
     Indication: ENDOTRACHEAL INTUBATION
     Dosage: 5 MG
     Route: 042
  20. LASIX [Concomitant]
     Indication: HYPERTENSION
     Dosage: 20 MG
     Route: 042
     Dates: start: 20091225, end: 20091226
  21. NOR-ADRENALIN [Concomitant]
     Indication: CARDIAC FAILURE
     Dosage: 3 MG
     Route: 042
  22. INOVAN [Concomitant]
     Indication: HYPERTENSION
     Dosage: 150 MG
     Route: 042
  23. DORMICIUM [Concomitant]
     Indication: SEDATION
     Dosage: 50 MG
     Route: 042
  24. MAGNESOL [Concomitant]
     Indication: MINERAL SUPPLEMENTATION
     Route: 042
  25. BIOFERMIN [Concomitant]
     Dosage: 3 G
     Route: 065
  26. VALTREX [Concomitant]
     Indication: ANTIVIRAL TREATMENT
     Dosage: 1000 MG
     Route: 048
  27. POTASSIUM CHLORIDE [Concomitant]
     Indication: MINERAL SUPPLEMENTATION
     Dosage: 3 G
     Route: 065
  28. ZINC OXIDE [Concomitant]
     Indication: ECZEMA
     Route: 065
  29. NICARPINE [Concomitant]
     Indication: HYPERTENSION
     Dosage: 50 MG
     Route: 042
  30. LEPETAN [Concomitant]
     Indication: SEDATIVE THERAPY
     Dosage: 0.4 MG
     Route: 042
  31. LOPEMIN FOR CHILDREN [Concomitant]
     Dosage: 1 MG
     Route: 065
  32. POTASSIUM IODIDE [Concomitant]
     Indication: BASEDOW'S DISEASE
     Dosage: 150 MG
     Route: 048
     Dates: start: 20091224, end: 20091227
  33. CALBLOCK [Concomitant]
     Indication: HYPERTENSION
     Dosage: 16 MG
     Route: 048
     Dates: start: 20091224, end: 20091226
  34. FERO-GRADUMET [Concomitant]
     Indication: ANAEMIA
     Dosage: 105 MG
     Route: 048
     Dates: start: 20091224, end: 20091226
  35. HANP [Concomitant]
     Indication: CARDIAC FAILURE
     Dosage: 3000 MCG
     Route: 042
     Dates: start: 20091224, end: 20091226
  36. LENDORMIN [Concomitant]
     Dosage: 0.5DF
     Route: 048
     Dates: start: 20091226, end: 20091226
  37. VASOLAN [Concomitant]
     Dosage: 120 MG
     Route: 048
     Dates: start: 20091225, end: 20091226

REACTIONS (3)
  - CARDIO-RESPIRATORY ARREST [None]
  - HYPERTHYROIDISM [None]
  - MULTI-ORGAN FAILURE [None]
